FAERS Safety Report 17607287 (Version 2)
Quarter: 2025Q4

REPORT INFORMATION
  Report Type: Spontaneous
  Country: EU (occurrence: EU)
  Receive Date: 20200331
  Receipt Date: 20251027
  Transmission Date: 20260117
  Serious: Yes (Other)
  Sender: AUROBINDO
  Company Number: EU-MLMSERVICE-20200319-2215749-1

PATIENT
  Age: 82 Year
  Sex: Male

DRUGS (2)
  1. ZOLEDRONIC ACID [Suspect]
     Active Substance: ZOLEDRONIC ACID
     Indication: Osteolysis
     Dosage: UNK
     Route: 042
     Dates: start: 201706, end: 201806
  2. NIVOLUMAB [Concomitant]
     Active Substance: NIVOLUMAB
     Indication: Adenocarcinoma gastric
     Dosage: UNK
     Route: 042
     Dates: start: 20170925, end: 201806

REACTIONS (4)
  - Lithiasis [Unknown]
  - Renal impairment [Recovered/Resolved]
  - Hydronephrosis [Unknown]
  - Disease progression [Unknown]

NARRATIVE: CASE EVENT DATE: 20180601
